FAERS Safety Report 15353176 (Version 1)
Quarter: 2018Q3

REPORT INFORMATION
  Report Type: Spontaneous
  Country: FR (occurrence: FR)
  Receive Date: 20180905
  Receipt Date: 20180905
  Transmission Date: 20181010
  Serious: Yes (Other)
  Sender: FDA-Public Use
  Company Number: FR-JNJFOC-20180901963

PATIENT
  Age: 14 Year
  Sex: Male

DRUGS (7)
  1. MORPHINE [Concomitant]
     Active Substance: MORPHINE
     Route: 065
  2. ONDANSETRON [Interacting]
     Active Substance: ONDANSETRON
     Indication: PROPHYLAXIS OF NAUSEA AND VOMITING
     Route: 065
  3. UROMITEXAN [Concomitant]
     Active Substance: MESNA
     Route: 065
  4. ETOPOSIDE. [Concomitant]
     Active Substance: ETOPOSIDE
     Indication: OSTEOSARCOMA
     Route: 065
  5. METHOTREXATE. [Concomitant]
     Active Substance: METHOTREXATE
     Indication: OSTEOSARCOMA
     Route: 050
  6. IFOSFAMIDE. [Interacting]
     Active Substance: IFOSFAMIDE
     Indication: OSTEOSARCOMA
     Route: 050
  7. TRAMADOL HYDROCHLORIDE. [Suspect]
     Active Substance: TRAMADOL HYDROCHLORIDE
     Indication: PRODUCT USED FOR UNKNOWN INDICATION
     Route: 065

REACTIONS (2)
  - Drug interaction [Recovered/Resolved]
  - Encephalopathy [Recovered/Resolved]
